FAERS Safety Report 4296217-X (Version None)
Quarter: 2004Q1

REPORT INFORMATION
  Report Type: 
  Country: None (occurrence: None)
  Receive Date: 20040217
  Receipt Date: 20030918
  Transmission Date: 20041129
  Serious: No
  Sender: FDA-Public Use
  Company Number: US-GLAXOSMITHKLINE-A0426455A

PATIENT
  Age: 37 Year
  Sex: Female

DRUGS (4)
  1. LAMICTAL [Suspect]
     Indication: BIPOLAR DISORDER
     Dosage: 250MG PER DAY
     Route: 048
     Dates: start: 20030401, end: 20030901
  2. CONCERTA [Concomitant]
  3. HALCION [Concomitant]
  4. LEXAPRO [Concomitant]

REACTIONS (2)
  - RASH [None]
  - SWELLING FACE [None]
